FAERS Safety Report 8795395 (Version 2)
Quarter: 2015Q4

REPORT INFORMATION
  Report Type: Report from Study
  Country: US (occurrence: US)
  Receive Date: 20120917
  Receipt Date: 20151117
  Transmission Date: 20160305
  Serious: Yes (Death)
  Sender: FDA-Public Use
  Company Number: US-ROCHE-1129437

PATIENT
  Sex: Male
  Weight: 78.5 kg

DRUGS (16)
  1. ABRAXANE [Concomitant]
     Active Substance: PACLITAXEL
     Route: 065
  2. AVASTIN [Suspect]
     Active Substance: BEVACIZUMAB
     Route: 042
  3. KYTRIL [Suspect]
     Active Substance: GRANISETRON HYDROCHLORIDE
     Indication: PRODUCT USED FOR UNKNOWN INDICATION
     Route: 048
  4. TAXOL [Concomitant]
     Active Substance: PACLITAXEL
  5. SODIUM CHLORIDE. [Concomitant]
     Active Substance: SODIUM CHLORIDE
  6. ABRAXANE [Concomitant]
     Active Substance: PACLITAXEL
     Route: 065
  7. ABRAXANE [Concomitant]
     Active Substance: PACLITAXEL
     Route: 042
  8. AVASTIN [Suspect]
     Active Substance: BEVACIZUMAB
     Route: 042
  9. AVASTIN [Suspect]
     Active Substance: BEVACIZUMAB
     Route: 042
  10. CARBOPLATIN. [Concomitant]
     Active Substance: CARBOPLATIN
  11. ABRAXANE [Concomitant]
     Active Substance: PACLITAXEL
     Route: 065
  12. AVASTIN [Suspect]
     Active Substance: BEVACIZUMAB
     Indication: MALIGNANT MELANOMA
     Route: 042
     Dates: start: 20100217
  13. AVASTIN [Suspect]
     Active Substance: BEVACIZUMAB
     Route: 042
  14. PROCHLORPERAZINE. [Concomitant]
     Active Substance: PROCHLORPERAZINE
     Route: 042
  15. ACETAMINOPHEN. [Concomitant]
     Active Substance: ACETAMINOPHEN
     Route: 042
  16. MEPERIDINE [Concomitant]
     Active Substance: MEPERIDINE
     Route: 042

REACTIONS (5)
  - Death [Fatal]
  - Decreased appetite [Unknown]
  - Alopecia [Unknown]
  - Nausea [Unknown]
  - Fatigue [Unknown]
